FAERS Safety Report 20062321 (Version 2)
Quarter: 2021Q4

REPORT INFORMATION
  Report Type: Spontaneous
  Country: US (occurrence: None)
  Receive Date: 20211112
  Receipt Date: 20211207
  Transmission Date: 20220303
  Serious: No
  Sender: FDA-Public Use
  Company Number: 2021A773910

PATIENT
  Age: 27996 Day
  Sex: Female
  Weight: 73.5 kg

DRUGS (1)
  1. BUDESONIDE\FORMOTEROL\GLYCOPYRRONIUM [Suspect]
     Active Substance: BUDESONIDE\FORMOTEROL\GLYCOPYRRONIUM
     Indication: Chronic obstructive pulmonary disease
     Dosage: 160/9/4.8
     Route: 055
     Dates: start: 20210905, end: 20210912

REACTIONS (5)
  - Dyspnoea [Recovering/Resolving]
  - Secretion discharge [Unknown]
  - Lethargy [Unknown]
  - Malaise [Unknown]
  - Drug delivery system issue [Unknown]

NARRATIVE: CASE EVENT DATE: 20210911
